FAERS Safety Report 6418584-0 (Version None)
Quarter: 2009Q4

REPORT INFORMATION
  Report Type: 
  Country: None (occurrence: None)
  Receive Date: 20091028
  Receipt Date: 20091015
  Transmission Date: 20100525
  Serious: Yes (Hospitalization, Other)
  Sender: FDA-Public Use
  Company Number: PHHY2009JP39943

PATIENT
  Age: 38 Year
  Sex: Male

DRUGS (3)
  1. GLEEVEC [Suspect]
     Indication: GASTROINTESTINAL STROMAL TUMOUR
     Dosage: 400 MG DAILY
     Route: 048
  2. GLEEVEC [Suspect]
     Dosage: 800 MG DAILY
     Route: 048
     Dates: start: 20070901, end: 20080301
  3. SUTENT [Suspect]
     Dosage: 50 MG/DAY
     Route: 048
     Dates: start: 20080601

REACTIONS (5)
  - DRUG RESISTANCE [None]
  - MALIGNANT NEOPLASM PROGRESSION [None]
  - PERITONEAL HAEMORRHAGE [None]
  - SKIN LESION [None]
  - THYROID DISORDER [None]
